FAERS Safety Report 17060718 (Version 1)
Quarter: 2019Q4

REPORT INFORMATION
  Report Type: Spontaneous
  Country: US (occurrence: US)
  Receive Date: 20191121
  Receipt Date: 20191121
  Transmission Date: 20200122
  Serious: No
  Sender: FDA-Public Use
  Company Number: US-ELI_LILLY_AND_COMPANY-US201910011439

PATIENT
  Age: 13 Year
  Sex: Female

DRUGS (1)
  1. HUMATROPE [Suspect]
     Active Substance: SOMATROPIN
     Indication: GROWTH HORMONE DEFICIENCY
     Dosage: 1.7 MG, DAILY
     Route: 065
     Dates: end: 201909

REACTIONS (2)
  - Injection site urticaria [Not Recovered/Not Resolved]
  - Skin burning sensation [Not Recovered/Not Resolved]
